FAERS Safety Report 11426118 (Version 2)
Quarter: 2015Q3

REPORT INFORMATION
  Report Type: Spontaneous
  Country: US (occurrence: US)
  Receive Date: 20150821
  Receipt Date: 20150903
  Transmission Date: 20151125
  Serious: No
  Sender: FDA-Public Use
  Company Number: US-ELI_LILLY_AND_COMPANY-US201011000822

PATIENT
  Sex: Male

DRUGS (4)
  1. HUMULIN N [Suspect]
     Active Substance: INSULIN HUMAN
     Indication: TYPE 1 DIABETES MELLITUS
     Dosage: 34 U, EACH EVENING
     Dates: start: 20100301
  2. HUMALOG [Suspect]
     Active Substance: INSULIN LISPRO
     Indication: TYPE 1 DIABETES MELLITUS
     Dosage: 6 U, UNK
     Dates: start: 20100301
  3. HUMALOG MIX75/25 [Suspect]
     Active Substance: INSULIN LISPRO
     Indication: TYPE 1 DIABETES MELLITUS
     Dosage: 25 U, UNK
     Dates: start: 20051101
  4. HUMALOG [Suspect]
     Active Substance: INSULIN LISPRO
     Dosage: UNK, AS NEEDED
     Dates: start: 20100301

REACTIONS (2)
  - Blood glucose increased [Unknown]
  - Sinusitis [Recovering/Resolving]
